FAERS Safety Report 9994879 (Version 1)
Quarter: 2014Q1

REPORT INFORMATION
  Report Type: Spontaneous
  Country: GB (occurrence: None)
  Receive Date: 20140218
  Receipt Date: 20140218
  Transmission Date: 20141002
  Serious: Yes (Life-Threatening)
  Sender: FDA-Public Use
  Company Number: E2B_00001544

PATIENT
  Age: 73 Year
  Sex: Female

DRUGS (9)
  1. METFORMIN (UNKNOWN) [Suspect]
     Indication: DIABETES MELLITUS
     Route: 048
     Dates: end: 20131125
  2. IRBESARTAN (UNKNOWN) [Suspect]
     Indication: HYPERTENSION
     Route: 048
     Dates: end: 20131125
  3. CICLOSPORIN (UNKNOWN) [Suspect]
     Indication: AUTOIMMUNE HAEMOLYTIC ANAEMIA
     Route: 048
     Dates: start: 20131116, end: 20131125
  4. ISOSORBIDE MONONITRATE [Concomitant]
  5. CARBOCISTEINE  (UNKNOWN) [Concomitant]
  6. FOLIC ACID [Concomitant]
  7. RITUXIMAB (MABTHERA) (UNKNOWN) [Concomitant]
  8. BISOPROLOL (UNKNONWN) [Concomitant]
  9. FLUOROURACIL (EFUDIX) (UNKNOWN) [Concomitant]

REACTIONS (1)
  - Renal failure [None]
